FAERS Safety Report 22314299 (Version 2)
Quarter: 2023Q2

REPORT INFORMATION
  Report Type: Spontaneous
  Country: JP (occurrence: JP)
  Receive Date: 20230512
  Receipt Date: 20230602
  Transmission Date: 20230721
  Serious: Yes (Death, Other)
  Sender: FDA-Public Use
  Company Number: JP-GLAXOSMITHKLINE-JP2023JPN065679

PATIENT

DRUGS (12)
  1. DAPRODUSTAT [Suspect]
     Active Substance: DAPRODUSTAT
     Indication: Nephrogenic anaemia
     Dosage: 4 MG
  2. FUROSEMIDE [Concomitant]
     Active Substance: FUROSEMIDE
     Dosage: UNK
  3. AZOSEMIDE [Concomitant]
     Active Substance: AZOSEMIDE
     Dosage: UNK
  4. FEBUXOSTAT [Concomitant]
     Active Substance: FEBUXOSTAT
     Dosage: UNK
  5. TORSEMIDE [Concomitant]
     Active Substance: TORSEMIDE
     Dosage: UNK
  6. TOLVAPTAN [Concomitant]
     Active Substance: TOLVAPTAN
     Dosage: UNK
  7. LANTHANUM CARBONATE [Concomitant]
     Active Substance: LANTHANUM CARBONATE
     Dosage: UNK
  8. WARFARIN POTASSIUM [Concomitant]
     Active Substance: WARFARIN POTASSIUM
     Dosage: UNK
  9. BELSOMRA [Concomitant]
     Active Substance: SUVOREXANT
     Dosage: UNK
  10. NAUZELIN [Concomitant]
     Active Substance: DOMPERIDONE
     Dosage: UNK
  11. NITRODERM [Concomitant]
     Active Substance: NITROGLYCERIN
     Dosage: UNK
  12. BROTIZOLAM [Concomitant]
     Active Substance: BROTIZOLAM
     Dosage: UNK

REACTIONS (1)
  - Death [Fatal]

NARRATIVE: CASE EVENT DATE: 20230426
